FAERS Safety Report 5908798-8 (Version None)
Quarter: 2008Q3

REPORT INFORMATION
  Report Type: 
  Country: None (occurrence: None)
  Receive Date: 20080930
  Receipt Date: 20080923
  Transmission Date: 20090109
  Serious: Yes (Hospitalization)
  Sender: FDA-Public Use
  Company Number: TPA2008A01502

PATIENT
  Age: 69 Year
  Sex: Male
  Weight: 79.3795 kg

DRUGS (4)
  1. ACTOS [Suspect]
     Indication: DIABETES MELLITUS
     Dosage: 30 MG, 1 IN 1 D, PER ORAL
     Route: 048
     Dates: start: 20060101
  2. DIOVAN [Concomitant]
  3. CRESTOR [Concomitant]
  4. METFORMIN HCL [Concomitant]

REACTIONS (3)
  - INFECTION [None]
  - SUBCUTANEOUS ABSCESS [None]
  - TREATMENT NONCOMPLIANCE [None]
